FAERS Safety Report 26208418 (Version 1)
Quarter: 2025Q4

REPORT INFORMATION
  Report Type: Spontaneous
  Country: US (occurrence: None)
  Receive Date: 20251227
  Receipt Date: 20251227
  Transmission Date: 20260118
  Serious: Yes (Disabling)
  Sender: FDA-CTU
  Company Number: None

PATIENT
  Age: 19 Year
  Sex: Male
  Weight: 69.75 kg

DRUGS (1)
  1. ZOLOFT [Suspect]
     Active Substance: SERTRALINE HYDROCHLORIDE
     Indication: Depression
     Route: 048

REACTIONS (2)
  - Erectile dysfunction [None]
  - Sexual dysfunction [None]

NARRATIVE: CASE EVENT DATE: 20060501
